FAERS Safety Report 21406778 (Version 1)
Quarter: 2022Q4

REPORT INFORMATION
  Report Type: Spontaneous
  Country: CO (occurrence: CO)
  Receive Date: 20221004
  Receipt Date: 20221004
  Transmission Date: 20230113
  Serious: Yes (Hospitalization)
  Sender: FDA-Public Use
  Company Number: CO-MSNLABS-2022MSNSPO01194

PATIENT

DRUGS (3)
  1. DEFERASIROX [Suspect]
     Active Substance: DEFERASIROX
     Indication: Haemosiderosis
     Route: 048
     Dates: start: 20220730
  2. ENALAPRIL [Concomitant]
     Active Substance: ENALAPRIL
     Indication: Proteinuria
     Dosage: DAILY
     Route: 048
  3. FOLIC ACID [Concomitant]
     Active Substance: FOLIC ACID
     Indication: Product used for unknown indication
     Dosage: DAILY
     Route: 048

REACTIONS (1)
  - Red blood cell transfusion [Recovered/Resolved]

NARRATIVE: CASE EVENT DATE: 20220914
